FAERS Safety Report 9586988 (Version 1)
Quarter: 2013Q4

REPORT INFORMATION
  Report Type: Spontaneous
  Country: US (occurrence: US)
  Receive Date: 20131003
  Receipt Date: 20131003
  Transmission Date: 20140711
  Serious: Yes (Other)
  Sender: FDA-Public Use
  Company Number: US-ASTRAZENECA-2013SE71659

PATIENT
  Sex: Female

DRUGS (2)
  1. ENTOCORT [Suspect]
     Route: 048
  2. TYLENOL [Suspect]
     Route: 065

REACTIONS (3)
  - Pancreatitis [Unknown]
  - Serum sickness [Unknown]
  - Drug hypersensitivity [Unknown]
